FAERS Safety Report 17623277 (Version 1)
Quarter: 2020Q2

REPORT INFORMATION
  Report Type: Spontaneous
  Country: US (occurrence: US)
  Receive Date: 20200403
  Receipt Date: 20200403
  Transmission Date: 20200713
  Serious: Yes (Other)
  Sender: FDA-Public Use
  Company Number: US-ASTRAZENECA-2020SE44878

PATIENT

DRUGS (1)
  1. IMFINZI [Suspect]
     Active Substance: DURVALUMAB
     Route: 042

REACTIONS (9)
  - Dysphagia [Unknown]
  - Decreased appetite [Unknown]
  - Diplopia [Unknown]
  - Gait disturbance [Unknown]
  - Dyspnoea [Unknown]
  - Myasthenia gravis [Unknown]
  - Weight decreased [Unknown]
  - Feeling abnormal [Unknown]
  - Malaise [Unknown]
